FAERS Safety Report 18227114 (Version 1)
Quarter: 2020Q3

REPORT INFORMATION
  Report Type: Spontaneous
  Country: US (occurrence: US)
  Receive Date: 20200902
  Receipt Date: 20200902
  Transmission Date: 20201103
  Serious: Yes (Other)
  Sender: FDA-Public Use
  Company Number: None

PATIENT
  Age: 47 Year
  Sex: Male

DRUGS (1)
  1. BUPRENORPHINE NALOXONE TABS 8MG?2MG [Suspect]
     Active Substance: BUPRENORPHINE\NALOXONE
     Indication: DRUG DEPENDENCE
     Dosage: ?          OTHER DOSE:8MG?2MG;?
     Route: 048

REACTIONS (5)
  - Vomiting [None]
  - Anxiety [None]
  - Nausea [None]
  - Drug dependence [None]
  - Abdominal discomfort [None]

NARRATIVE: CASE EVENT DATE: 2019
